FAERS Safety Report 20949244 (Version 1)
Quarter: 2022Q2

REPORT INFORMATION
  Report Type: Report from Study
  Country: BR (occurrence: BR)
  Receive Date: 20220613
  Receipt Date: 20220613
  Transmission Date: 20220721
  Serious: Yes (Hospitalization)
  Sender: FDA-Public Use
  Company Number: BR-NOVOPROD-926542

PATIENT
  Age: 67 Year
  Sex: Female
  Weight: 95 kg

DRUGS (2)
  1. VICTOZA [Suspect]
     Active Substance: LIRAGLUTIDE
     Indication: Obesity
     Dosage: UNK
     Route: 065
     Dates: start: 2017
  2. VICTOZA [Suspect]
     Active Substance: LIRAGLUTIDE
     Dosage: INCREASED DOSE
     Route: 065
     Dates: start: 2017

REACTIONS (4)
  - Abdominal distension [Recovered/Resolved]
  - Malaise [Recovered/Resolved]
  - Blood creatine phosphokinase increased [Recovered/Resolved]
  - Off label use [Unknown]

NARRATIVE: CASE EVENT DATE: 20170101
